FAERS Safety Report 6492432-5 (Version None)
Quarter: 2009Q4

REPORT INFORMATION
  Report Type: 
  Country: None (occurrence: None)
  Receive Date: 20091214
  Receipt Date: 20091202
  Transmission Date: 20100525
  Serious: Yes (Other)
  Sender: FDA-Public Use
  Company Number: ES-ROCHE-672434

PATIENT
  Age: 58 Year
  Sex: Female

DRUGS (6)
  1. TAMIFLU [Suspect]
     Indication: H1N1 INFLUENZA
     Route: 048
     Dates: start: 20091005, end: 20091009
  2. TAVANIC [Concomitant]
     Indication: H1N1 INFLUENZA
     Route: 048
     Dates: start: 20091005, end: 20091009
  3. TERBASMIN [Concomitant]
     Dosage: DRUG:TERBASMIN TURBUHALER; DOSE:2 INHALATION IF DYSPNEA
     Route: 055
  4. DACORTIN [Concomitant]
     Indication: H1N1 INFLUENZA
     Dosage: TOTAL DOSE: 180 MG; 1-0-0 DURING 3 DAYS FOLLOWED BY A GRADUAL DECREASE OF DOSE
     Route: 048
     Dates: start: 20091005, end: 20091007
  5. DACORTIN [Concomitant]
     Dosage: DOSE GRADUALLY DECREASED (1/3 OF TABLET)
     Route: 048
     Dates: start: 20091007, end: 20091009
  6. OMEPRAZOLE [Concomitant]
     Route: 048
     Dates: start: 20091005

REACTIONS (3)
  - ABDOMINAL PAIN [None]
  - MUSCLE SPASMS [None]
  - NAUSEA [None]
